FAERS Safety Report 10005752 (Version 1)
Quarter: 2014Q1

REPORT INFORMATION
  Report Type: Spontaneous
  Country: US (occurrence: US)
  Receive Date: 20140313
  Receipt Date: 20140313
  Transmission Date: 20141002
  Serious: No
  Sender: FDA-Public Use
  Company Number: US-BIOGENIDEC-2014BI021406

PATIENT
  Sex: Female

DRUGS (14)
  1. TECFIDERA [Suspect]
     Indication: PRODUCT USED FOR UNKNOWN INDICATION
     Route: 048
  2. ALBUTEROL [Concomitant]
  3. ALDACTONE [Concomitant]
  4. BIOTIN [Concomitant]
  5. COPAXONE [Concomitant]
  6. IBUPROFEN [Concomitant]
  7. LEVOTHYROXINE [Concomitant]
  8. LEXAPRO [Concomitant]
  9. LUNESTA [Concomitant]
  10. NASONEX [Concomitant]
  11. PROVENTIL [Concomitant]
  12. PULMICORT [Concomitant]
  13. SINGULAIR [Concomitant]
  14. SPIRONOLACTONE [Concomitant]

REACTIONS (1)
  - Adverse event [Unknown]
